FAERS Safety Report 4952436-8 (Version None)
Quarter: 2006Q1

REPORT INFORMATION
  Report Type: 
  Country: None (occurrence: None)
  Receive Date: 20060323
  Receipt Date: 20050930
  Transmission Date: 20060701
  Serious: Yes (Hospitalization, Disabling)
  Sender: FDA-Public Use
  Company Number: US-MERCK-0510USA01518

PATIENT
  Age: 43 Year
  Sex: Male
  Weight: 78 kg

DRUGS (8)
  1. VIOXX [Suspect]
     Indication: RHEUMATOID ARTHRITIS
     Route: 048
     Dates: start: 19990501, end: 20010401
  2. VIOXX [Suspect]
     Route: 048
     Dates: start: 20010901
  3. VIOXX [Suspect]
     Route: 048
     Dates: start: 20010901
  4. VIOXX [Suspect]
     Route: 048
     Dates: start: 19990501, end: 20010401
  5. VIOXX [Suspect]
     Indication: ARTHRALGIA
     Route: 048
     Dates: start: 19990501, end: 20010401
  6. VIOXX [Suspect]
     Route: 048
     Dates: start: 20010901
  7. VIOXX [Suspect]
     Route: 048
     Dates: start: 20010901
  8. VIOXX [Suspect]
     Route: 048
     Dates: start: 19990501, end: 20010401

REACTIONS (7)
  - ABDOMINAL PAIN UPPER [None]
  - ANGINA UNSTABLE [None]
  - CHEST DISCOMFORT [None]
  - CHEST PAIN [None]
  - CORONARY ARTERY DISEASE [None]
  - DYSPEPSIA [None]
  - MYOCARDIAL INFARCTION [None]
